FAERS Safety Report 5019769-0 (Version None)
Quarter: 2006Q2

REPORT INFORMATION
  Report Type: 
  Country: None (occurrence: None)
  Receive Date: 20060607
  Receipt Date: 20060523
  Transmission Date: 20061013
  Serious: No
  Sender: FDA-Public Use
  Company Number: DEWYE647523MAY06

PATIENT
  Sex: Male

DRUGS (2)
  1. ENBREL [Suspect]
     Indication: DRUG USE FOR UNKNOWN INDICATION
     Dosage: UNKNOWN
     Route: 058
     Dates: end: 20060501
  2. ISONIAZID [Suspect]
     Dosage: UNKNOWN
     Route: 065
     Dates: end: 20060501

REACTIONS (1)
  - BLINDNESS UNILATERAL [None]
